FAERS Safety Report 12389401 (Version 1)
Quarter: 2016Q2

REPORT INFORMATION
  Report Type: Spontaneous
  Country: BR (occurrence: BR)
  Receive Date: 20160520
  Receipt Date: 20160520
  Transmission Date: 20160815
  Serious: Yes (Hospitalization, Other)
  Sender: FDA-Public Use
  Company Number: BR-GLAXOSMITHKLINE-BR2016GSK067607

PATIENT
  Age: 3 Month
  Sex: Male
  Weight: 7 kg

DRUGS (1)
  1. AEROLIN NEBULES [Suspect]
     Active Substance: ALBUTEROL SULFATE
     Indication: PRODUCT USED FOR UNKNOWN INDICATION
     Dosage: UNK, QID
     Route: 048

REACTIONS (5)
  - Tremor [Unknown]
  - Product preparation error [Unknown]
  - Poisoning [Unknown]
  - Tachycardia [Unknown]
  - Incorrect route of drug administration [Unknown]
